FAERS Safety Report 5796270-8 (Version None)
Quarter: 2008Q2

REPORT INFORMATION
  Report Type: 
  Country: None (occurrence: None)
  Receive Date: 20080626
  Receipt Date: 20080611
  Transmission Date: 20081010
  Serious: Yes (Other)
  Sender: FDA-Public Use
  Company Number: 2008AL004859

PATIENT
  Age: 72 Year
  Sex: Male
  Weight: 64.8644 kg

DRUGS (5)
  1. DIGOXIN [Suspect]
     Indication: CARDIAC DISORDER
     Dosage: DAILY PO
     Route: 048
  2. MS CONTIN [Concomitant]
  3. COUMADIN [Concomitant]
  4. ALLOPURINOL [Concomitant]
  5. COLACE [Concomitant]

REACTIONS (8)
  - DIALYSIS [None]
  - DIARRHOEA [None]
  - LOSS OF CONSCIOUSNESS [None]
  - MALAISE [None]
  - NAUSEA [None]
  - RENAL FAILURE [None]
  - THERAPEUTIC AGENT TOXICITY [None]
  - VOMITING [None]
